FAERS Safety Report 6274695-4 (Version None)
Quarter: 2009Q3

REPORT INFORMATION
  Report Type: 
  Country: None (occurrence: None)
  Receive Date: 20090721
  Receipt Date: 20071022
  Transmission Date: 20100115
  Serious: Yes (Other)
  Sender: FDA-Public Use
  Company Number: US-ASTRAZENECA-2007UW13891

PATIENT
  Age: 47 Year
  Sex: Female
  Weight: 113.4 kg

DRUGS (21)
  1. SEROQUEL [Suspect]
     Indication: BIPOLAR DISORDER
     Dosage: 100 TO 200 MG DAILY
     Route: 048
     Dates: start: 20010328
  2. SEROQUEL [Suspect]
     Indication: DEPRESSION
     Dosage: 100 TO 200 MG DAILY
     Route: 048
     Dates: start: 20010328
  3. SEROQUEL [Suspect]
     Dosage: 25MG-500MG
     Route: 048
     Dates: start: 20020212
  4. SEROQUEL [Suspect]
     Dosage: 25MG-500MG
     Route: 048
     Dates: start: 20020212
  5. RISPERDAL [Concomitant]
     Dates: start: 20010328
  6. CELEBREX [Concomitant]
     Indication: ARTHRALGIA
     Dates: start: 20030319
  7. LORTAB [Concomitant]
     Indication: ABDOMINAL PAIN
     Dates: start: 20030304
  8. TRICOR [Concomitant]
     Indication: BLOOD CHOLESTEROL
     Dosage: 45MG-160MG
     Dates: start: 20040630
  9. EFFEXOR [Concomitant]
     Indication: ANXIETY
     Dates: start: 20020212
  10. EFFEXOR [Concomitant]
     Indication: DEPRESSION
     Dates: start: 20020212
  11. ATENOLOL [Concomitant]
     Indication: HYPERTENSION
     Dates: start: 20010328
  12. HYDROCHLOROTHIAZIDE [Concomitant]
     Indication: HYPERTENSION
     Dates: start: 20010328
  13. DARVOCET [Concomitant]
     Indication: PAIN
     Dates: start: 19981030
  14. VYTORIN [Concomitant]
     Dosage: 10/40
     Dates: start: 20051008
  15. MAXZIDE [Concomitant]
     Dosage: 25/37.5MG
     Dates: start: 20021112
  16. NEXIUM [Concomitant]
     Dates: start: 20031223
  17. ZOCOR [Concomitant]
     Dosage: 20MG-40MG
     Dates: start: 20021112
  18. ZESTRIL [Concomitant]
     Dates: start: 20021112
  19. TOPAMAX [Concomitant]
     Dates: start: 20021112
  20. AMBIEN [Concomitant]
     Indication: SLEEP DISORDER
     Dates: start: 20021202
  21. PROTONIX [Concomitant]
     Dates: start: 20050905

REACTIONS (11)
  - AMNESIA [None]
  - ARTHRITIS [None]
  - BLOOD CHOLESTEROL INCREASED [None]
  - DISTURBANCE IN ATTENTION [None]
  - GASTROENTERITIS ESCHERICHIA COLI [None]
  - HYPERPROLACTINAEMIA [None]
  - NERVOUSNESS [None]
  - OBESITY [None]
  - PANCREATITIS ACUTE [None]
  - SOMNOLENCE [None]
  - TYPE 2 DIABETES MELLITUS [None]
